FAERS Safety Report 12854788 (Version 3)
Quarter: 2016Q4

REPORT INFORMATION
  Report Type: Spontaneous
  Country: US (occurrence: US)
  Receive Date: 20161017
  Receipt Date: 20161215
  Transmission Date: 20170207
  Serious: Yes (Other)
  Sender: FDA-Public Use
  Company Number: US-BELCHER PHARMACEUTICALS, LLC-2016VTS00166

PATIENT
  Age: 35 Year
  Sex: Female
  Weight: 58.96 kg

DRUGS (4)
  1. UNSPECIFIED BIRTH CONTROL [Concomitant]
     Active Substance: UNSPECIFIED INGREDIENT
     Dosage: UNK, 1X/DAY
  2. VITAMIN D [Concomitant]
     Active Substance: CHOLECALCIFEROL
     Dosage: UNK, 1X/DAY
  3. HYOSCYAMINE SULFATE. [Suspect]
     Active Substance: HYOSCYAMINE SULFATE
     Indication: GASTROINTESTINAL DISORDER
     Dosage: 0.125 MG, 3X/DAY
     Route: 048
     Dates: start: 201607, end: 20160909
  4. PROPRANOLOL [Concomitant]
     Active Substance: PROPRANOLOL\PROPRANOLOL HYDROCHLORIDE
     Dosage: UNK, 1X/DAY

REACTIONS (11)
  - Mydriasis [Recovered/Resolved]
  - Aptyalism [Recovered/Resolved]
  - Dysphagia [Recovered/Resolved]
  - Mastication disorder [Recovered/Resolved]
  - Feeling drunk [Recovered/Resolved]
  - Visual impairment [Recovered/Resolved]
  - Balance disorder [Recovered/Resolved]
  - Dysuria [Recovered/Resolved]
  - Dizziness [Recovered/Resolved]
  - Dysphonia [Recovered/Resolved]
  - Vision blurred [Recovered/Resolved]

NARRATIVE: CASE EVENT DATE: 20160909
